FAERS Safety Report 17847675 (Version 1)
Quarter: 2020Q2

REPORT INFORMATION
  Report Type: Spontaneous
  Country: KR (occurrence: KR)
  Receive Date: 20200601
  Receipt Date: 20200601
  Transmission Date: 20200714
  Serious: Yes (Death, Other)
  Sender: FDA-Public Use
  Company Number: KR-CASPER PHARMA LLC-2020CAS000254

PATIENT
  Age: 36 Year
  Sex: Male

DRUGS (1)
  1. BISMUTH, METRONIDAZOLE, TETRACYCLIN [Suspect]
     Active Substance: BISMUTH SUBSALICYLATE\METRONIDAZOLE\TETRACYCLINE HYDROCHLORIDE
     Indication: ANAL INFECTION
     Dosage: 500 MILLIGRAM, TID
     Route: 065

REACTIONS (1)
  - Toxic encephalopathy [Fatal]
